FAERS Safety Report 24009554 (Version 1)
Quarter: 2024Q2

REPORT INFORMATION
  Report Type: Spontaneous
  Country: US (occurrence: US)
  Receive Date: 20240625
  Receipt Date: 20240625
  Transmission Date: 20240716
  Serious: Yes (Other)
  Sender: FDA-Public Use
  Company Number: US-AMGEN-USASP2024121995

PATIENT
  Age: 65 Year
  Sex: Male

DRUGS (6)
  1. PREDNISONE [Suspect]
     Active Substance: PREDNISONE
     Indication: Limbal stem cell deficiency
     Dosage: 60 MILLIGRAM, QD
     Route: 048
  2. PREDNISONE [Suspect]
     Active Substance: PREDNISONE
     Indication: Corneal perforation
     Dosage: 40 MILLIGRAM, QD
     Route: 048
  3. DURVALUMAB [Concomitant]
     Active Substance: DURVALUMAB
     Indication: Non-small cell lung cancer
     Dosage: UNK
     Route: 065
     Dates: start: 202112
  4. ERYTHROMYCIN [Concomitant]
     Active Substance: ERYTHROMYCIN
     Dosage: UNK
     Route: 065
  5. DORZOLAMIDE\TIMOLOL [Concomitant]
     Active Substance: DORZOLAMIDE\TIMOLOL
     Indication: Open angle glaucoma
     Dosage: UNK
     Route: 065
  6. MOXIFLOXACIN [Concomitant]
     Active Substance: MOXIFLOXACIN
     Dosage: UNK
     Route: 065

REACTIONS (7)
  - Corneal perforation [Recovered/Resolved]
  - Ulcerative keratitis [Recovered/Resolved]
  - Drug ineffective for unapproved indication [Unknown]
  - Conjunctival oedema [Recovering/Resolving]
  - Antinuclear antibody increased [Unknown]
  - Chronic papillomatous dermatitis [Unknown]
  - Off label use [Unknown]
